FAERS Safety Report 9819795 (Version 15)
Quarter: 2016Q3

REPORT INFORMATION
  Report Type: Report from Study
  Country: BR (occurrence: BR)
  Receive Date: 20140116
  Receipt Date: 20160707
  Transmission Date: 20161109
  Serious: Yes (Life-Threatening, Hospitalization, Other)
  Sender: FDA-Public Use
  Company Number: BR-ROCHE-1333990

PATIENT
  Age: 43 Year
  Sex: Female
  Weight: 61 kg

DRUGS (40)
  1. XOLAIR [Suspect]
     Active Substance: OMALIZUMAB
     Indication: ASTHMA
     Dosage: 1 DF, QMO (AMPOULE)
     Route: 058
     Dates: start: 2004
  2. XOLAIR [Suspect]
     Active Substance: OMALIZUMAB
     Dosage: 150 AMPOULES
     Route: 058
  3. XOLAIR [Suspect]
     Active Substance: OMALIZUMAB
     Dosage: UNK
     Route: 058
     Dates: start: 20140930
  4. SERETIDE [Concomitant]
     Active Substance: FLUTICASONE PROPIONATE\SALMETEROL XINAFOATE
     Indication: ASTHMA
     Dosage: 1 DF (50/250 MG), QD (JET)
     Route: 055
     Dates: start: 201408
  5. TIOTROPIUM BROMIDE [Concomitant]
     Active Substance: TIOTROPIUM BROMIDE
     Route: 055
  6. XOLAIR [Suspect]
     Active Substance: OMALIZUMAB
     Dosage: UNK
     Route: 058
     Dates: start: 20130613
  7. XOLAIR [Suspect]
     Active Substance: OMALIZUMAB
     Dosage: 2 AMPOULES PER MONTH
     Route: 058
     Dates: start: 2006, end: 2011
  8. HYDROCORTISONE. [Suspect]
     Active Substance: HYDROCORTISONE
     Indication: PRODUCT USED FOR UNKNOWN INDICATION
     Dosage: UNK
     Route: 065
  9. BEROTEC [Concomitant]
     Active Substance: FENOTEROL HYDROBROMIDE
     Indication: ASTHMA
     Dosage: 3 DF, QD (JET)
     Route: 065
     Dates: start: 2004
  10. XOLAIR [Suspect]
     Active Substance: OMALIZUMAB
     Dosage: 1 DF, (AMPOULE)
     Route: 058
     Dates: start: 20140930
  11. SPIRIVA [Concomitant]
     Active Substance: TIOTROPIUM BROMIDE MONOHYDRATE
     Dosage: 1 DF, QD (JET)
     Route: 065
     Dates: start: 201408
  12. SPIRIVA [Concomitant]
     Active Substance: TIOTROPIUM BROMIDE MONOHYDRATE
     Dosage: 2.5 UG, BID (1 ASPIRATION)
     Route: 055
  13. SERETIDE [Concomitant]
     Active Substance: FLUTICASONE PROPIONATE\SALMETEROL XINAFOATE
     Indication: ASTHMA
     Dosage: 2 DF, QD (JET)
     Route: 065
     Dates: start: 201408
  14. MONTELAIR [Concomitant]
     Active Substance: MONTELUKAST SODIUM
     Dosage: 200 MG, BID
     Route: 048
  15. TIOTROPIUM BROMIDE [Concomitant]
     Active Substance: TIOTROPIUM BROMIDE
     Indication: ASTHMA
     Dosage: 1 DF, QD
     Route: 055
  16. AMINOPHYLLINE. [Concomitant]
     Active Substance: AMINOPHYLLINE
     Indication: PRODUCT USED FOR UNKNOWN INDICATION
     Dosage: UNK, QW
     Route: 065
  17. RELVAR [Concomitant]
     Active Substance: FLUTICASONE FUROATE\VILANTEROL TRIFENATATE
     Dosage: BID RESPIRATORY INHALATION
     Route: 055
  18. FORASEQ (BRAZIL) [Concomitant]
     Active Substance: BUDESONIDE\FORMOTEROL FUMARATE
     Indication: ASTHMA
     Dosage: 12/400 MCG, 1 ASPIRATION
     Route: 055
  19. DIOVAN [Concomitant]
     Active Substance: VALSARTAN
     Indication: ASTHMA
     Dosage: 25 MG, QD
     Route: 048
  20. PREDSIN [Concomitant]
     Indication: ASTHMA
     Dosage: 20 MG, QD (FOR 2 MONTHS)
     Route: 048
  21. SPIRIVA [Concomitant]
     Active Substance: TIOTROPIUM BROMIDE MONOHYDRATE
     Dosage: UNK, BID
     Route: 055
  22. MONTELAIR [Concomitant]
     Active Substance: MONTELUKAST SODIUM
     Dosage: 25 MG, QD
     Route: 048
  23. RELVAR [Concomitant]
     Active Substance: FLUTICASONE FUROATE\VILANTEROL TRIFENATATE
     Indication: ASTHMA
     Dosage: 200/250 MCG, 1 ASPIRATION
     Route: 055
     Dates: start: 201502
  24. XOLAIR [Suspect]
     Active Substance: OMALIZUMAB
     Dosage: 2 DF(AMPOULES), QMO
     Route: 058
     Dates: start: 200507
  25. XOLAIR [Suspect]
     Active Substance: OMALIZUMAB
     Dosage: 2 DF (150 MG AMPOULES) PER MONTH
     Route: 058
     Dates: start: 2009, end: 2009
  26. SINGULAIR [Concomitant]
     Active Substance: MONTELUKAST SODIUM
     Indication: PRODUCT USED FOR UNKNOWN INDICATION
     Route: 065
  27. XOLAIR [Suspect]
     Active Substance: OMALIZUMAB
     Dosage: UNK
     Route: 058
     Dates: start: 2010, end: 2010
  28. SPIRIVA [Concomitant]
     Active Substance: TIOTROPIUM BROMIDE MONOHYDRATE
     Indication: ASTHMA
     Dosage: 1 DF, UNK
     Route: 065
     Dates: start: 20140713, end: 20140713
  29. SPIRIVA [Concomitant]
     Active Substance: TIOTROPIUM BROMIDE MONOHYDRATE
     Dosage: UNK
     Route: 048
  30. MONTELAIR [Concomitant]
     Active Substance: MONTELUKAST SODIUM
     Indication: ASTHMA
     Dosage: 1 DF, QD
     Route: 048
     Dates: start: 201408
  31. SERETIDE [Concomitant]
     Active Substance: FLUTICASONE PROPIONATE\SALMETEROL XINAFOATE
     Dosage: 50/500, 2 PUFFS, (1 PUFF IN THE MORNING/ 1 PUFF AT NIGHT)
     Route: 065
  32. TEOLONG [Concomitant]
     Indication: ASTHMA
     Dosage: 1 DF, BID
     Route: 048
  33. CORTISONE [Concomitant]
     Active Substance: CORTISONE\HYDROCORTISONE
     Indication: PRODUCT USED FOR UNKNOWN INDICATION
     Dosage: 500 MG, QW
     Route: 065
  34. FLIXOTIDE [Concomitant]
     Active Substance: FLUTICASONE PROPIONATE
     Dosage: UNK, BID
     Route: 048
  35. XOLAIR [Suspect]
     Active Substance: OMALIZUMAB
     Dosage: 300 MG, QMO
     Route: 058
  36. XOLAIR [Suspect]
     Active Substance: OMALIZUMAB
     Dosage: UNK
     Route: 058
     Dates: start: 201604
  37. SERETIDE [Concomitant]
     Active Substance: FLUTICASONE PROPIONATE\SALMETEROL XINAFOATE
     Dosage: UNK, BID
     Route: 048
  38. FLIXOTIDE [Concomitant]
     Active Substance: FLUTICASONE PROPIONATE
     Indication: ASTHMA
     Dosage: 1 DF (250 UG), QD (1 ASPIRATION)
     Route: 055
     Dates: start: 201601
  39. ATROVENT [Concomitant]
     Active Substance: IPRATROPIUM BROMIDE
     Indication: ASTHMA
     Dosage: 7 DRP, QD
     Route: 065
     Dates: start: 2004
  40. RELVAR [Concomitant]
     Active Substance: FLUTICASONE FUROATE\VILANTEROL TRIFENATATE
     Dosage: 250 MG, QD
     Route: 048

REACTIONS (37)
  - Blood immunoglobulin E increased [Not Recovered/Not Resolved]
  - Blister [Recovered/Resolved]
  - Post procedural haemorrhage [Not Recovered/Not Resolved]
  - Asthenia [Unknown]
  - Aphonia [Unknown]
  - Weight decreased [Recovering/Resolving]
  - Heart rate increased [Not Recovered/Not Resolved]
  - Vomiting [Not Recovered/Not Resolved]
  - Malaise [Unknown]
  - Anaemia [Unknown]
  - Cardiac arrest [Recovering/Resolving]
  - Generalised erythema [Recovered/Resolved]
  - Menorrhagia [Unknown]
  - Drug ineffective [Unknown]
  - Pneumonia [Recovering/Resolving]
  - Chronic sinusitis [Not Recovered/Not Resolved]
  - Haemorrhage [Not Recovered/Not Resolved]
  - Post procedural complication [Unknown]
  - Hypotension [Not Recovered/Not Resolved]
  - Dry mouth [Not Recovered/Not Resolved]
  - Visual acuity reduced [Unknown]
  - Lung disorder [Not Recovered/Not Resolved]
  - Tracheal disorder [Unknown]
  - Blood pressure increased [Not Recovered/Not Resolved]
  - Pharyngeal oedema [Unknown]
  - Haematemesis [Unknown]
  - Injection site pain [Not Recovered/Not Resolved]
  - Drug administration error [Unknown]
  - Fatigue [Not Recovered/Not Resolved]
  - Asthma [Not Recovered/Not Resolved]
  - Cerebrovascular accident [Not Recovered/Not Resolved]
  - Feeling abnormal [Unknown]
  - Injection site erythema [Not Recovered/Not Resolved]
  - Injection site discomfort [Not Recovered/Not Resolved]
  - Dental caries [Unknown]
  - Speech disorder [Not Recovered/Not Resolved]
  - Application site bruise [Recovering/Resolving]

NARRATIVE: CASE EVENT DATE: 2007
